FAERS Safety Report 24070789 (Version 1)
Quarter: 2024Q3

REPORT INFORMATION
  Report Type: Report from Study
  Country: IN (occurrence: IN)
  Receive Date: 20240710
  Receipt Date: 20240710
  Transmission Date: 20241017
  Serious: No
  Sender: ROCHE
  Company Number: IN-ROCHE-3389922

PATIENT
  Age: 59 Year
  Sex: Male

DRUGS (1)
  1. PHESGO [Suspect]
     Active Substance: HYALURONIDASE-ZZXF\PERTUZUMAB\TRASTUZUMAB
     Indication: Gastrooesophageal cancer
     Route: 058
     Dates: start: 20230504

REACTIONS (4)
  - Drug ineffective [Unknown]
  - Asthenia [Unknown]
  - Cardiovascular disorder [Unknown]
  - Eating disorder [Unknown]
